FAERS Safety Report 8205977 (Version 2)
Quarter: 2013Q1

REPORT INFORMATION
  Report Type: Report from Study
  Country: US (occurrence: US)
  Receive Date: 20111028
  Receipt Date: 20130226
  Transmission Date: 20140127
  Serious: Yes (Hospitalization)
  Sender: FDA-Public Use
  Company Number: US-CELGENEUS-163-FK228-11102579

PATIENT
  Sex: 0

DRUGS (16)
  1. ROMIDEPSIN [Suspect]
     Indication: PRODUCT USED FOR UNKNOWN INDICATION
     Dosage: 8 MILLIGRAM/SQ. METER
     Route: 041
     Dates: start: 20111014, end: 20111014
  2. BORTEZOMIB [Suspect]
     Indication: PRODUCT USED FOR UNKNOWN INDICATION
     Dosage: 1.6 MILLIGRAM/SQ. METER
     Route: 041
     Dates: start: 20111014, end: 20111014
  3. ACYCLOVIR [Concomitant]
     Indication: PRODUCT USED FOR UNKNOWN INDICATION
     Dosage: 400 MILLIGRAM
     Route: 048
  4. ALLOPURINOL [Concomitant]
     Indication: PRODUCT USED FOR UNKNOWN INDICATION
     Dosage: 300 MILLIGRAM
     Route: 048
  5. ZYRTEC [Concomitant]
     Indication: PRODUCT USED FOR UNKNOWN INDICATION
     Dosage: 5 MILLIGRAM
     Route: 048
  6. DOCUSATE [Concomitant]
     Indication: PRODUCT USED FOR UNKNOWN INDICATION
     Dosage: 100 MILLIGRAM
     Route: 048
  7. NEXIUM [Concomitant]
     Indication: PRODUCT USED FOR UNKNOWN INDICATION
     Dosage: 40 MILLIGRAM
     Route: 048
  8. LEVOFLOXACIN [Concomitant]
     Indication: PRODUCT USED FOR UNKNOWN INDICATION
     Dosage: 500 MILLIGRAM
     Route: 048
  9. SINGULAIR [Concomitant]
     Indication: PRODUCT USED FOR UNKNOWN INDICATION
     Dosage: 10 MILLIGRAM
     Route: 048
  10. ALBUTEROL [Concomitant]
     Indication: PRODUCT USED FOR UNKNOWN INDICATION
     Dosage: 3 MILLILITER
     Route: 055
  11. XANAX [Concomitant]
     Indication: PRODUCT USED FOR UNKNOWN INDICATION
     Dosage: .5 MILLIGRAM
     Route: 048
  12. FLEXERIL [Concomitant]
     Indication: PRODUCT USED FOR UNKNOWN INDICATION
     Dosage: 10 MILLIGRAM
     Route: 048
  13. PROCHLORPERAZINE [Concomitant]
     Indication: PRODUCT USED FOR UNKNOWN INDICATION
     Dosage: 10 MILLIGRAM
     Route: 048
  14. INFLUENZA VIRUS VACCINE [Concomitant]
     Indication: PRODUCT USED FOR UNKNOWN INDICATION
     Dosage: .5 MILLILITER
     Route: 030
  15. SODIUM CHLORIDE [Concomitant]
     Indication: PRODUCT USED FOR UNKNOWN INDICATION
     Dosage: 500 MILLILITER
     Route: 041
  16. DEXTROSE [Concomitant]
     Indication: PRODUCT USED FOR UNKNOWN INDICATION
     Dosage: 1000 MILLILITER
     Route: 041

REACTIONS (13)
  - Cytokine release syndrome [Recovered/Resolved]
  - Conjunctivitis [Recovered/Resolved]
  - Oral dysaesthesia [Recovered/Resolved]
  - Photophobia [Recovered/Resolved]
  - Periorbital oedema [Recovered/Resolved]
  - Hyperhidrosis [Recovered/Resolved]
  - Rash macular [Recovered/Resolved]
  - Vomiting [Recovered/Resolved]
  - Nausea [Not Recovered/Not Resolved]
  - Diarrhoea [Recovered/Resolved]
  - Hypotension [Recovered/Resolved]
  - Chills [Recovered/Resolved]
  - Pyrexia [Unknown]
